FAERS Safety Report 6486949-7 (Version None)
Quarter: 2009Q4

REPORT INFORMATION
  Report Type: 
  Country: None (occurrence: None)
  Receive Date: 20091210
  Receipt Date: 20091119
  Transmission Date: 20100525
  Serious: Yes (Other)
  Sender: FDA-Public Use
  Company Number: PHHY2009FR51538

PATIENT
  Age: 75 Year
  Sex: Male

DRUGS (3)
  1. TAREG [Suspect]
     Dosage: 80 MG, UNK
     Route: 048
     Dates: start: 19990101
  2. TAREG [Suspect]
     Dosage: 160 MG, UNK
     Route: 048
  3. TAREG [Suspect]
     Dosage: 80 MG, UNK
     Route: 048

REACTIONS (2)
  - ECZEMA [None]
  - TOXIC SKIN ERUPTION [None]
